FAERS Safety Report 22190715 (Version 3)
Quarter: 2023Q4

REPORT INFORMATION
  Report Type: Spontaneous
  Country: US (occurrence: US)
  Receive Date: 20230410
  Receipt Date: 20231017
  Transmission Date: 20240110
  Serious: No
  Sender: FDA-Public Use
  Company Number: US-BRISTOL-MYERS SQUIBB COMPANY-2023-050090

PATIENT
  Age: 81 Year
  Sex: Female

DRUGS (1)
  1. REVLIMID [Suspect]
     Active Substance: LENALIDOMIDE
     Indication: Plasma cell myeloma
     Dosage: FRQ; 21
     Route: 048
     Dates: start: 202207

REACTIONS (7)
  - Toothache [Unknown]
  - Hyperaesthesia teeth [Unknown]
  - Gingival pain [Unknown]
  - Peripheral swelling [Unknown]
  - Onychalgia [Unknown]
  - Ingrowing nail [Unknown]
  - Onychomadesis [Unknown]

NARRATIVE: CASE EVENT DATE: 20230901
